FAERS Safety Report 23310000 (Version 2)
Quarter: 2024Q1

REPORT INFORMATION
  Report Type: Spontaneous
  Country: FR (occurrence: FR)
  Receive Date: 20231218
  Receipt Date: 20240216
  Transmission Date: 20240410
  Serious: Yes (Hospitalization)
  Sender: FDA-Public Use
  Company Number: None

PATIENT
  Age: 26 Year
  Sex: Female

DRUGS (3)
  1. DIAZEPAM [Suspect]
     Active Substance: DIAZEPAM
     Indication: Product used for unknown indication
     Dosage: UP TO 80 MG/DAY
     Route: 048
     Dates: start: 2023, end: 20231017
  2. CYAMEMAZINE [Suspect]
     Active Substance: CYAMEMAZINE
     Indication: Product used for unknown indication
     Dosage: 75MG DURING THE DAY, 150MG IN THE EVENING
     Route: 048
     Dates: start: 2023, end: 20231017
  3. CANNABIS SATIVA SUBSP. INDICA TOP [Concomitant]
     Active Substance: CANNABIS SATIVA SUBSP. INDICA TOP
     Indication: Product used for unknown indication
     Dosage: 3 TO 4 JOINTS PER DAY
     Route: 055
     Dates: start: 2023

REACTIONS (3)
  - Suicidal ideation [Recovered/Resolved]
  - Drug use disorder [Recovered/Resolved]
  - Substance use disorder [Recovered/Resolved]

NARRATIVE: CASE EVENT DATE: 20170101
